FAERS Safety Report 24933688 (Version 1)
Quarter: 2025Q1

REPORT INFORMATION
  Report Type: Report from Study
  Country: US (occurrence: US)
  Receive Date: 20250206
  Receipt Date: 20250206
  Transmission Date: 20250409
  Serious: Yes (Other)
  Sender: EXELIXIS
  Company Number: US-EXELIXIS-CABO-24073308

PATIENT
  Age: 58 Year
  Sex: Male
  Weight: 124.72 kg

DRUGS (1)
  1. CABOMETYX [Suspect]
     Active Substance: CABOZANTINIB S-MALATE
     Indication: Clear cell renal cell carcinoma
     Dosage: 60 MG, QD
     Route: 048
     Dates: start: 20231220, end: 20240123

REACTIONS (9)
  - Hypothyroidism [Unknown]
  - Malignant neoplasm progression [Unknown]
  - Burning sensation [Recovering/Resolving]
  - Drug eruption [Recovering/Resolving]
  - Palmar-plantar erythrodysaesthesia syndrome [Recovering/Resolving]
  - Cancer pain [Recovering/Resolving]
  - Limb mass [Unknown]
  - Myalgia [Unknown]
  - Back pain [Recovering/Resolving]

NARRATIVE: CASE EVENT DATE: 20240115
